FAERS Safety Report 16611345 (Version 10)
Quarter: 2020Q2

REPORT INFORMATION
  Report Type: Report from Study
  Country: JP (occurrence: JP)
  Receive Date: 20190722
  Receipt Date: 20200605
  Transmission Date: 20200713
  Serious: Yes (Life-Threatening)
  Sender: FDA-Public Use
  Company Number: PHHO2019JP007496

PATIENT
  Age: 45 Year
  Sex: Female
  Weight: 40.3 kg

DRUGS (42)
  1. METOCLOPRAMIDE HYDROCHLORIDE. [Concomitant]
     Active Substance: METOCLOPRAMIDE HYDROCHLORIDE
     Indication: PROPHYLAXIS OF NAUSEA AND VOMITING
     Dosage: UNK
     Route: 065
     Dates: start: 20190614, end: 20190712
  2. CHLORPHENIRAMINE. [Concomitant]
     Active Substance: CHLORPHENIRAMINE
     Indication: ALLERGY PROPHYLAXIS
     Dosage: UNK
     Route: 065
     Dates: start: 20190531
  3. HYDROCORTISONE SODIUM SUCCINATE [Concomitant]
     Active Substance: HYDROCORTISONE SODIUM SUCCINATE
     Indication: PYREXIA
     Dosage: UNK
     Route: 065
     Dates: start: 20190705, end: 20190705
  4. ENSURE [Concomitant]
     Active Substance: AMINO ACIDS\DEXTROSE\ELECTROLYTES NOS\SOYBEAN OIL\VITAMINS
     Indication: MALNUTRITION
     Dosage: UNK
     Route: 065
     Dates: start: 20190712, end: 20190712
  5. SOLDEM 3A [Concomitant]
     Active Substance: CARBOHYDRATES\POTASSIUM CHLORIDE\SODIUM CHLORIDE\SODIUM LACTATE
     Indication: NUTRITIONAL SUPPLEMENTATION
     Dosage: UNK
     Route: 065
     Dates: start: 20190708, end: 20190717
  6. SODIUM ALGINATE [Concomitant]
     Active Substance: SODIUM ALGINATE
     Indication: GASTRITIS
     Dosage: UNK
     Route: 065
     Dates: start: 20190720
  7. MIYA-BM [Concomitant]
     Active Substance: CLOSTRIDIUM BUTYRICUM SPORES STRAIN M-55
     Indication: DIARRHOEA
     Route: 065
     Dates: start: 20190602, end: 20190710
  8. SODIUM CHLORIDE. [Concomitant]
     Active Substance: SODIUM CHLORIDE
     Indication: PROPHYLAXIS
     Dosage: UNK
     Route: 065
     Dates: start: 20190522, end: 20190708
  9. SODIUM HYALURONATE [Concomitant]
     Active Substance: HYALURONATE SODIUM
     Indication: CONJUNCTIVAL HAEMORRHAGE
     Dosage: UNK
     Route: 065
     Dates: start: 20190621
  10. CEFEPIME DIHYDROCHLORIDE [Concomitant]
     Active Substance: CEFEPIME HYDROCHLORIDE
     Indication: FEBRILE NEUTROPENIA
     Dosage: UNK
     Route: 065
     Dates: start: 20190704, end: 20190706
  11. MICAFUNGIN SODIUM [Concomitant]
     Active Substance: MICAFUNGIN SODIUM
     Indication: FEBRILE NEUTROPENIA
     Dosage: UNK
     Route: 065
     Dates: start: 20190707, end: 20190712
  12. DAIPHEN [Concomitant]
     Active Substance: SULFAMETHOXAZOLE\TRIMETHOPRIM
     Indication: PNEUMONIA
     Dosage: UNK
     Route: 065
     Dates: start: 20190709, end: 20190716
  13. RACOL NF [Concomitant]
     Active Substance: AMINO ACIDS\DEXTROSE\ELECTROLYTES NOS\SOYBEAN OIL\VITAMINS
     Indication: MALNUTRITION
     Dosage: UNK
     Route: 065
     Dates: start: 20190712, end: 20190712
  14. THROMBOMODULIN ALFA [Concomitant]
     Active Substance: THROMBOMODULIN ALFA
     Indication: DISSEMINATED INTRAVASCULAR COAGULATION
     Dosage: UNK
     Route: 065
     Dates: start: 20190712, end: 20190719
  15. ACETAMINOPHEN. [Concomitant]
     Active Substance: ACETAMINOPHEN
     Indication: PYREXIA
  16. ISOTONIC SODIUM CHLORIDE SOLUTION [Concomitant]
     Active Substance: SODIUM CHLORIDE
     Indication: NUTRITIONAL SUPPLEMENTATION
     Dosage: UNK
     Route: 065
     Dates: start: 20190715, end: 20190718
  17. MIYA-BM [Concomitant]
     Active Substance: CLOSTRIDIUM BUTYRICUM SPORES STRAIN M-55
     Indication: PROPHYLAXIS
     Dosage: UNK
     Route: 065
     Dates: start: 20190711
  18. COMPARATOR DAUNORUBICIN [Suspect]
     Active Substance: DAUNORUBICIN
     Indication: ACUTE MYELOID LEUKAEMIA
     Dosage: 60 MG/M2, QD
     Route: 042
     Dates: start: 20190524
  19. TAZOPIPE [Concomitant]
     Active Substance: PIPERACILLIN SODIUM\TAZOBACTAM SODIUM
     Indication: FEBRILE NEUTROPENIA
     Dosage: UNK
     Route: 065
     Dates: start: 20190617, end: 20190703
  20. MEROPENEM. [Concomitant]
     Active Substance: MEROPENEM
     Indication: FEBRILE NEUTROPENIA
     Dosage: UNK
     Route: 065
     Dates: start: 20190707, end: 20190718
  21. VANCOMYCIN HYDROCHLORIDE. [Concomitant]
     Active Substance: VANCOMYCIN HYDROCHLORIDE
     Indication: FEBRILE NEUTROPENIA
     Dosage: UNK
     Route: 065
     Dates: start: 20190708, end: 20190718
  22. HUMAN NORMAL IMMUNOGLOBULIN [Concomitant]
     Active Substance: HUMAN IMMUNOGLOBULIN G
     Indication: PNEUMONIA
     Dosage: UNK
     Route: 065
     Dates: start: 20190714, end: 20190716
  23. AMPHOTERICIN B. [Concomitant]
     Active Substance: AMPHOTERICIN B
     Indication: PNEUMONIA
     Dosage: UNK
     Route: 065
     Dates: start: 20190712, end: 20190722
  24. PREDNISOLONE SODIUM SUCCINATE [Concomitant]
     Active Substance: PREDNISOLONE SODIUM SUCCINATE
     Indication: PYREXIA
     Dosage: UNK
     Route: 065
     Dates: start: 20190627, end: 20190628
  25. GARENOXACIN MESILATE [Concomitant]
     Active Substance: GARENOXACIN MESYLATE
     Indication: FEBRILE NEUTROPENIA
     Dosage: UNK
     Route: 065
     Dates: start: 20190704, end: 20190707
  26. URSODEOXYCHOLIC ACID [Concomitant]
     Active Substance: URSODIOL
     Indication: LIVER DISORDER
     Dosage: UNK
     Route: 065
     Dates: start: 20190718
  27. POLAPREZINC [Concomitant]
     Active Substance: POLAPREZINC
     Indication: PRODUCT USED FOR UNKNOWN INDICATION
     Dosage: UNK
     Route: 065
     Dates: start: 20190717
  28. PANTETHINE [Concomitant]
     Active Substance: PANTETHINE
     Indication: CONSTIPATION
     Dosage: UNK
     Route: 065
     Dates: start: 20190523
  29. MAGNESIUM OXIDE. [Concomitant]
     Active Substance: MAGNESIUM OXIDE
     Indication: CONSTIPATION
     Dosage: UNK
     Route: 065
     Dates: start: 20190523
  30. COMPARATOR CYTARABINE [Suspect]
     Active Substance: CYTARABINE
     Indication: ACUTE MYELOID LEUKAEMIA
     Dosage: 200 MG/M2, QD
     Route: 042
     Dates: start: 20190524
  31. SENNOSIDE A+B CALCIUM [Concomitant]
     Active Substance: SENNOSIDES A AND B
     Indication: CONSTIPATION
     Dosage: UNK
     Route: 065
     Dates: start: 20190524
  32. METHYLPREDNISOLONE SODIUM SUCCINATE. [Concomitant]
     Active Substance: METHYLPREDNISOLONE SODIUM SUCCINATE
     Indication: PYREXIA
     Dosage: UNK
     Route: 065
     Dates: start: 20190621, end: 20190626
  33. FULCALIQ [Concomitant]
     Active Substance: AMINO ACIDS\CARBOHYDRATES\ELECTROLYTES NOS\VITAMINS
     Indication: NAUSEA
     Dosage: UNK
     Route: 065
     Dates: start: 20190624, end: 20190626
  34. FULCALIQ [Concomitant]
     Active Substance: AMINO ACIDS\CARBOHYDRATES\ELECTROLYTES NOS\VITAMINS
     Indication: NUTRITIONAL SUPPLEMENTATION
     Dosage: UNK
     Route: 065
     Dates: start: 20190627, end: 20190707
  35. LEUPRORELIN ACETATE [Concomitant]
     Active Substance: LEUPROLIDE ACETATE
     Indication: MENORRHAGIA
     Dosage: UNK
     Route: 065
     Dates: start: 20190627, end: 20190627
  36. PREDNISOLONE. [Concomitant]
     Active Substance: PREDNISOLONE
     Indication: PYREXIA
     Dosage: UNK
     Route: 065
     Dates: start: 20190629, end: 20190715
  37. ACETAMINOPHEN. [Concomitant]
     Active Substance: ACETAMINOPHEN
     Indication: HEADACHE
     Dosage: UNK
     Route: 065
     Dates: start: 20190522
  38. PKC412 [Suspect]
     Active Substance: MIDOSTAURIN
     Indication: ACUTE MYELOID LEUKAEMIA
     Dosage: 100 MG, QD
     Route: 048
     Dates: start: 20190531
  39. PREDNISOLONE SODIUM SUCCINATE [Concomitant]
     Active Substance: PREDNISOLONE SODIUM SUCCINATE
     Indication: HAEMOPHAGOCYTIC LYMPHOHISTIOCYTOSIS
     Dosage: UNK
     Route: 065
     Dates: start: 20190716
  40. ACETAMINOPHEN. [Concomitant]
     Active Substance: ACETAMINOPHEN
     Indication: FEBRILE NEUTROPENIA
     Dosage: UNK
     Route: 065
     Dates: start: 20190531, end: 20190722
  41. ESOMEPRAZOLE MAGNESIUM. [Concomitant]
     Active Substance: ESOMEPRAZOLE MAGNESIUM
     Indication: PROPHYLAXIS AGAINST GASTROINTESTINAL ULCER
     Dosage: UNK
     Route: 065
     Dates: start: 20190524
  42. BFLUID [Concomitant]
     Active Substance: AMINO ACIDS\DEXTROSE\ELECTROLYTES NOS\VITAMINS
     Indication: MALNUTRITION
     Dosage: UNK
     Route: 065
     Dates: start: 20190717, end: 20190723

REACTIONS (1)
  - Pneumonia [Recovered/Resolved]

NARRATIVE: CASE EVENT DATE: 20190716
